FAERS Safety Report 9794839 (Version 1)
Quarter: 2014Q1

REPORT INFORMATION
  Report Type: Spontaneous
  Country: DE (occurrence: DE)
  Receive Date: 20140102
  Receipt Date: 20140102
  Transmission Date: 20141002
  Serious: Yes (Life-Threatening, Hospitalization, Congenital Anomaly)
  Sender: FDA-Public Use
  Company Number: DE-MYLANLABS-2013S1028625

PATIENT
  Sex: Female
  Weight: 3.28 kg

DRUGS (5)
  1. CITALOPRAM [Suspect]
     Dosage: 30 [MG/D ]
     Route: 064
     Dates: start: 20091009, end: 20100426
  2. PARACETAMOL [Concomitant]
     Route: 064
  3. FOLIO [Concomitant]
     Dosage: 0.4 [MG/D ]
     Route: 064
     Dates: end: 20100316
  4. AMITRIPTYLIN [Concomitant]
     Dosage: 75 [MG/D ]
     Route: 064
     Dates: start: 20100426, end: 20100718
  5. DIAZEPAM [Concomitant]
     Dosage: 2 [MG/D ]
     Route: 064
     Dates: start: 20100506

REACTIONS (4)
  - Ventricular septal defect [Not Recovered/Not Resolved]
  - Truncus arteriosus persistent [Recovered/Resolved with Sequelae]
  - Atrial septal defect [Unknown]
  - Exposure during pregnancy [Recovered/Resolved]
